FAERS Safety Report 8965251 (Version 1)
Quarter: 2012Q4

REPORT INFORMATION
  Report Type: 
  Country: DE (occurrence: DE)
  Receive Date: 20121214
  Receipt Date: 20121214
  Transmission Date: 20130627
  Serious: Yes (Hospitalization, Other)
  Sender: FDA-Public Use
  Company Number: PHHY2012DE112100

PATIENT
  Age: 76 Year
  Sex: Male

DRUGS (10)
  1. LEPONEX [Suspect]
     Dosage: 75 mg, QD
     Route: 048
     Dates: start: 20120401, end: 20120416
  2. LEPONEX [Suspect]
     Dosage: 150 mg, QD
     Route: 048
     Dates: start: 20120417, end: 20120427
  3. ARICEPT [Suspect]
     Indication: DEMENTIA ALZHEIMER^S TYPE
     Dosage: 10 mg, QD
     Route: 048
     Dates: start: 20120401, end: 20120427
  4. ARICEPT [Suspect]
     Dosage: 5 mg, QD
     Route: 048
     Dates: start: 201205
  5. MELPERONE [Suspect]
     Dosage: 75 mg, QD
     Route: 048
     Dates: start: 20120401, end: 20120427
  6. TAMSULOSIN [Concomitant]
     Dosage: 0.4 mg, QD
     Route: 048
     Dates: start: 20120404, end: 20120427
  7. SEROQUEL [Concomitant]
     Dosage: 25 mg, QD
     Dates: start: 201205
  8. DIPIPERON [Concomitant]
     Dosage: 80 mg, QD
     Dates: start: 201205
  9. PANTOZOL [Concomitant]
     Dosage: 40 mg, QD
     Dates: start: 201205
  10. ENOXAPARIN SODIUM [Concomitant]
     Dosage: 40 mg, QD
     Dates: start: 201205

REACTIONS (20)
  - Lung infection [Recovered/Resolved]
  - Pneumonia aspiration [Recovered/Resolved]
  - Memory impairment [Recovered/Resolved]
  - Disturbance in attention [Recovered/Resolved]
  - Parkinsonism [Recovered/Resolved]
  - Akinesia [Recovered/Resolved]
  - Musculoskeletal stiffness [Recovered/Resolved]
  - Neuroleptic malignant syndrome [Recovered/Resolved]
  - Disorientation [Recovered/Resolved]
  - C-reactive protein increased [Recovered/Resolved]
  - Muscle contractions involuntary [Recovered/Resolved]
  - Blood creatine phosphokinase increased [Recovered/Resolved]
  - Myoclonus [Recovered/Resolved]
  - Chills [Recovered/Resolved]
  - Salivary hypersecretion [Recovered/Resolved]
  - White blood cell count increased [Recovered/Resolved]
  - Pyrexia [Recovered/Resolved]
  - Hallucination, visual [Unknown]
  - Fungal infection [Recovered/Resolved]
  - Aggression [Unknown]
